FAERS Safety Report 24137949 (Version 2)
Quarter: 2024Q3

REPORT INFORMATION
  Report Type: Spontaneous
  Country: US (occurrence: US)
  Receive Date: 20240725
  Receipt Date: 20240826
  Transmission Date: 20241017
  Serious: Yes (Other)
  Sender: MYLAN
  Company Number: US-MYLANLABS-2024M1066858

PATIENT
  Age: 77 Year
  Sex: Female
  Weight: 76.2 kg

DRUGS (6)
  1. ESTRADIOL [Suspect]
     Active Substance: ESTRADIOL
     Indication: Vulvovaginal dryness
     Dosage: 0.01 PERCENT, 3XW (THREE TIMES A WEEK)
     Route: 067
     Dates: start: 20240528
  2. ESTRADIOL [Suspect]
     Active Substance: ESTRADIOL
     Indication: Hysterectomy
     Dosage: 0.01 PERCENT, 4XW (FOUR TIMES A WEEK)
     Route: 067
  3. ESTRADIOL [Suspect]
     Active Substance: ESTRADIOL
     Indication: Transient ischaemic attack
  4. VALSARTAN [Concomitant]
     Active Substance: VALSARTAN
     Indication: Hypertension
     Dosage: UNK
     Route: 065
  5. LIPITOR [Concomitant]
     Active Substance: ATORVASTATIN CALCIUM
     Indication: Transient ischaemic attack
     Dosage: UNK
     Route: 065
  6. ASPIRIN [Concomitant]
     Active Substance: ASPIRIN
     Indication: Transient ischaemic attack
     Dosage: UNK
     Route: 065

REACTIONS (4)
  - Transient ischaemic attack [Recovered/Resolved]
  - Vaginal haemorrhage [Recovered/Resolved]
  - Wrong technique in product usage process [Unknown]
  - Off label use [Unknown]

NARRATIVE: CASE EVENT DATE: 20240530
